FAERS Safety Report 10397086 (Version 2)
Quarter: 2014Q3

REPORT INFORMATION
  Report Type: Spontaneous
  Country: US (occurrence: US)
  Receive Date: 20140820
  Receipt Date: 20140929
  Transmission Date: 20150326
  Serious: No
  Sender: FDA-Public Use
  Company Number: US-PFIZER INC-2014228608

PATIENT
  Age: 66 Year
  Sex: Female
  Weight: 50 kg

DRUGS (3)
  1. RELPAX [Suspect]
     Active Substance: ELETRIPTAN HYDROBROMIDE
     Indication: HEADACHE
     Dosage: 40 MG, AS NEEDED
     Route: 048
  2. IBUPROFEN. [Concomitant]
     Active Substance: IBUPROFEN
     Dosage: UNK
  3. CLONAZEPAM. [Concomitant]
     Active Substance: CLONAZEPAM
     Indication: SLEEP DISORDER
     Dosage: UNK

REACTIONS (4)
  - Weight decreased [Unknown]
  - Migraine [Unknown]
  - Off label use [Unknown]
  - Hypotension [Unknown]
